FAERS Safety Report 9893624 (Version 1)
Quarter: 2014Q1

REPORT INFORMATION
  Report Type: Spontaneous
  Country: US (occurrence: US)
  Receive Date: 20140213
  Receipt Date: 20140213
  Transmission Date: 20141002
  Serious: No
  Sender: FDA-Public Use
  Company Number: PHEH2014US002789

PATIENT
  Sex: 0

DRUGS (2)
  1. TASIGNA [Suspect]
     Dosage: UNK UKN, UNK
  2. WARFARIN [Concomitant]

REACTIONS (3)
  - Arthropathy [Unknown]
  - Muscle spasms [Unknown]
  - Tremor [Unknown]
